FAERS Safety Report 7949487-8 (Version None)
Quarter: 2011Q4

REPORT INFORMATION
  Report Type: 
  Country: None (occurrence: None)
  Receive Date: 20111130
  Receipt Date: 20110207
  Transmission Date: 20120403
  Serious: Yes (Disabling, Other)
  Sender: FDA-Public Use
  Company Number: AU-TYCO HEALTHCARE/MALLINCKRODT-T201100287

PATIENT
  Age: 50 Year
  Sex: Female
  Weight: 60 kg

DRUGS (7)
  1. EXALGO [Suspect]
     Indication: PRODUCT USED FOR UNKNOWN INDICATION
     Dosage: 4 MG, UNK
     Route: 048
  2. OXYCONTIN [Concomitant]
     Dosage: UNK
  3. LIPITOR [Concomitant]
     Dosage: 20 MG, QD
  4. ANTIDEPRESSANTS [Concomitant]
     Dosage: UNK
  5. NORSPAN                            /00444001/ [Concomitant]
     Dosage: 20 MG IN ONE WEEK
     Route: 062
  6. ZOLOFT [Concomitant]
     Dosage: 100 MG, UNK
     Route: 048
  7. WARFARIN SODIUM [Concomitant]
     Dosage: UNK

REACTIONS (2)
  - SEROTONIN SYNDROME [None]
  - DYSPNOEA [None]
